FAERS Safety Report 22094760 (Version 1)
Quarter: 2023Q1

REPORT INFORMATION
  Report Type: Spontaneous
  Country: US (occurrence: US)
  Receive Date: 20230314
  Receipt Date: 20230314
  Transmission Date: 20230417
  Serious: No
  Sender: FDA-Public Use
  Company Number: US-INSUD PHARMA-2303US01323

PATIENT

DRUGS (1)
  1. CLOBETASOL [Suspect]
     Active Substance: CLOBETASOL
     Indication: Rash
     Dosage: 2X/DAY UP TO 2 WEEKS, THEN DISCONTINUE FOR 2 WEEKS, THEN REAPPLLY FOR 2 WEEKS OFF AND ON AS NEEDED
     Route: 061
     Dates: start: 20220818, end: 20230301

REACTIONS (4)
  - Condition aggravated [Recovering/Resolving]
  - Rash [Recovering/Resolving]
  - Erythema [Recovering/Resolving]
  - Skin haemorrhage [Recovering/Resolving]

NARRATIVE: CASE EVENT DATE: 20220818
